FAERS Safety Report 24285575 (Version 6)
Quarter: 2025Q1

REPORT INFORMATION
  Report Type: Spontaneous
  Country: US (occurrence: US)
  Receive Date: 20240905
  Receipt Date: 20250328
  Transmission Date: 20250408
  Serious: No
  Sender: MERCK SHARP & DOHME LLC
  Company Number: US-009507513-2409USA000572

PATIENT
  Sex: Female

DRUGS (10)
  1. WINREVAIR [Suspect]
     Active Substance: SOTATERCEPT-CSRK
     Indication: Pulmonary arterial hypertension
     Dosage: DOSE DESCRIPTION : 1.3 MILLIGRAM, Q3W?DAILY DOSE : 0.061 MILLIGRAM?REGIMEN DOSE : 1.3  MILLIGRAM
     Route: 042
     Dates: start: 20240703
  2. WINREVAIR [Suspect]
     Active Substance: SOTATERCEPT-CSRK
     Route: 042
     Dates: start: 2024, end: 20241229
  3. WINREVAIR [Suspect]
     Active Substance: SOTATERCEPT-CSRK
  4. WINREVAIR [Suspect]
     Active Substance: SOTATERCEPT-CSRK
  5. REMODULIN [Suspect]
     Active Substance: TREPROSTINIL
     Indication: Pulmonary arterial hypertension
     Route: 041
     Dates: start: 202112
  6. REMODULIN [Suspect]
     Active Substance: TREPROSTINIL
     Indication: Pulmonary arterial hypertension
     Route: 041
  7. REMODULIN [Suspect]
     Active Substance: TREPROSTINIL
     Indication: Pulmonary arterial hypertension
     Route: 041
  8. REMODULIN [Suspect]
     Active Substance: TREPROSTINIL
     Indication: Pulmonary arterial hypertension
     Route: 041
  9. OPSUMIT [Concomitant]
     Active Substance: MACITENTAN
     Dates: start: 2020
  10. TADALAFIL [Concomitant]
     Active Substance: TADALAFIL

REACTIONS (11)
  - Bronchitis [Unknown]
  - Bronchitis [Unknown]
  - Flushing [Unknown]
  - COVID-19 [Recovering/Resolving]
  - Headache [Unknown]
  - Eye swelling [Unknown]
  - Diarrhoea [Unknown]
  - Pain in jaw [Unknown]
  - Adverse drug reaction [Unknown]
  - Incorrect route of product administration [Unknown]
  - Metapneumovirus infection [Unknown]

NARRATIVE: CASE EVENT DATE: 20240101
